FAERS Safety Report 8240287-0 (Version None)
Quarter: 2012Q1

REPORT INFORMATION
  Report Type: 
  Country: None (occurrence: None)
  Receive Date: 20120328
  Receipt Date: 20120328
  Transmission Date: 20120608
  Serious: Yes (Other)
  Sender: FDA-Public Use
  Company Number: None

PATIENT
  Sex: Female
  Weight: 95.254 kg

DRUGS (3)
  1. PAROXETINE HCL [Suspect]
     Indication: DEPRESSION
     Dosage: 20.0 MG
     Route: 048
     Dates: start: 20120308, end: 20120324
  2. TOPAMAX [Concomitant]
     Route: 048
  3. LEVETIRACETAM [Concomitant]
     Route: 048

REACTIONS (7)
  - DIZZINESS [None]
  - MUSCLE TIGHTNESS [None]
  - CRYING [None]
  - UNEVALUABLE EVENT [None]
  - GRAND MAL CONVULSION [None]
  - RESTLESSNESS [None]
  - MIDDLE INSOMNIA [None]
